FAERS Safety Report 22135409 (Version 1)
Quarter: 2023Q1

REPORT INFORMATION
  Report Type: Other
  Country: US (occurrence: None)
  Receive Date: 20230324
  Receipt Date: 20230324
  Transmission Date: 20230417
  Serious: Yes (Other)
  Sender: FDA-Public Use
  Company Number: US-ROCHE-2493357

PATIENT
  Age: 72 Year
  Sex: Male

DRUGS (10)
  1. RITUXAN [Suspect]
     Active Substance: RITUXIMAB
     Indication: Rheumatoid arthritis
     Dosage: INFUSE 1000MG INTRAVENOUSLY ON DAY(S) 1 AND DAY(S) 15 EVERY 16 WEEK(S)?RITUXIMAB RECEIVED ON 22/AUG/
     Route: 042
  2. RITUXAN [Suspect]
     Active Substance: RITUXIMAB
     Dosage: INFUSE 1000MG INTRAVENOUSLY ON DAY(S) 0 AND DAY(S) 15 EVERY 16 WEEK(S)
     Route: 042
  3. CELEXA [Concomitant]
     Active Substance: CITALOPRAM HYDROBROMIDE
  4. GLIPIZIDE [Concomitant]
     Active Substance: GLIPIZIDE
  5. LANTUS [Concomitant]
     Active Substance: INSULIN GLARGINE
  6. ATORVASTATIN [Concomitant]
     Active Substance: ATORVASTATIN
  7. LORAZEPAM [Concomitant]
     Active Substance: LORAZEPAM
  8. LOSARTAN [Concomitant]
     Active Substance: LOSARTAN
  9. ZYRTEC [Concomitant]
     Active Substance: CETIRIZINE HYDROCHLORIDE
  10. OMEPRAZOLE [Concomitant]
     Active Substance: OMEPRAZOLE

REACTIONS (2)
  - Off label use [Unknown]
  - Neoplasm malignant [Unknown]
